FAERS Safety Report 16090838 (Version 2)
Quarter: 2019Q1

REPORT INFORMATION
  Report Type: Report from Study
  Country: US (occurrence: US)
  Receive Date: 20190319
  Receipt Date: 20190328
  Transmission Date: 20190418
  Serious: Yes (Other)
  Sender: FDA-Public Use
  Company Number: US-GILEAD-2019-0397268

PATIENT
  Age: 76 Year
  Sex: Female

DRUGS (1)
  1. AMBRISENTAN [Suspect]
     Active Substance: AMBRISENTAN
     Indication: PRODUCT USED FOR UNKNOWN INDICATION
     Dosage: 10 MG
     Route: 065
     Dates: start: 20120507

REACTIONS (7)
  - Pulmonary hypertension [Unknown]
  - Depressed mood [Recovered/Resolved]
  - Cerebrovascular accident [Unknown]
  - Migraine [Not Recovered/Not Resolved]
  - Malaise [Not Recovered/Not Resolved]
  - Chest pain [Not Recovered/Not Resolved]
  - Stress [Unknown]

NARRATIVE: CASE EVENT DATE: 20190326
